FAERS Safety Report 8005400-9 (Version None)
Quarter: 2011Q4

REPORT INFORMATION
  Report Type: 
  Country: None (occurrence: None)
  Receive Date: 20111223
  Receipt Date: 20111221
  Transmission Date: 20120403
  Serious: Yes (Hospitalization)
  Sender: FDA-Public Use
  Company Number: DE-ROCHE-1019304

PATIENT
  Sex: Female
  Weight: 83 kg

DRUGS (11)
  1. PANTOPRAZOLE SODIUM [Concomitant]
  2. SIMVASTATIN [Concomitant]
  3. L-THYROX [Concomitant]
  4. PREDNISOLONE [Concomitant]
  5. TORSEMIDE [Concomitant]
  6. ASPIRIN [Concomitant]
  7. SPIRONOLACTONE [Concomitant]
  8. OLMESARTAN MEDOXOMIL [Concomitant]
  9. BONIVA [Suspect]
     Indication: OSTEOPOROSIS
     Route: 042
     Dates: start: 20100511
  10. BELOC MITE [Concomitant]
  11. BERLOSIN [Concomitant]

REACTIONS (1)
  - SYNCOPE [None]
